APPROVED DRUG PRODUCT: COMTAN
Active Ingredient: ENTACAPONE
Strength: 200MG
Dosage Form/Route: TABLET;ORAL
Application: N020796 | Product #001 | TE Code: AB
Applicant: ORION PHARMA
Approved: Oct 19, 1999 | RLD: Yes | RS: Yes | Type: RX